FAERS Safety Report 9399859 (Version 1)
Quarter: 2013Q3

REPORT INFORMATION
  Report Type: Spontaneous
  Country: IN (occurrence: IN)
  Receive Date: 20130715
  Receipt Date: 20130715
  Transmission Date: 20140515
  Serious: Yes (Death, Hospitalization)
  Sender: FDA-Public Use
  Company Number: PHHY2013IN074283

PATIENT
  Age: 81 Year
  Sex: Female

DRUGS (1)
  1. ACLASTA [Suspect]
     Indication: BONE DISORDER
     Dosage: 5MG/100ML/YEAR
     Route: 042
     Dates: start: 20130625

REACTIONS (3)
  - Death [Fatal]
  - Obstructive airways disorder [Unknown]
  - Cough [Unknown]
